FAERS Safety Report 12853781 (Version 1)
Quarter: 2016Q4

REPORT INFORMATION
  Report Type: Spontaneous
  Country: AU (occurrence: AU)
  Receive Date: 20161017
  Receipt Date: 20161017
  Transmission Date: 20170207
  Serious: Yes (Other)
  Sender: FDA-Public Use
  Company Number: AU-TOLMAR, INC.-2015AU010620

PATIENT
  Sex: Male

DRUGS (3)
  1. PANAMAX                            /00020001/ [Concomitant]
     Route: 065
  2. MERSYNDOL                          /01137701/ [Concomitant]
     Route: 065
  3. ELIGARD [Suspect]
     Active Substance: LEUPROLIDE ACETATE
     Indication: PROSTATE CANCER
     Dosage: 22.5 MG, Q3MONTHS
     Route: 065
     Dates: start: 201407

REACTIONS (2)
  - Sedation [Not Recovered/Not Resolved]
  - Pain in extremity [Not Recovered/Not Resolved]
